FAERS Safety Report 5094821-2 (Version None)
Quarter: 2006Q3

REPORT INFORMATION
  Report Type: 
  Country: None (occurrence: None)
  Receive Date: 20060830
  Receipt Date: 20060830
  Transmission Date: 20061208
  Serious: Yes (Death, Disabling)
  Sender: FDA-Public Use
  Company Number: None

PATIENT
  Age: 59 Year
  Sex: Male
  Weight: 68.4932 kg

DRUGS (15)
  1. WINRHO SD [Suspect]
     Indication: IDIOPATHIC THROMBOCYTOPENIC PURPURA
     Dosage: GIVEN IN HOSP
     Dates: start: 20060824
  2. LORA TAB [Concomitant]
  3. BENADRY [Concomitant]
  4. NITROGLYCERIN [Concomitant]
  5. PREDNISONE TAB [Concomitant]
  6. CARDIZEM [Concomitant]
  7. IMDUR [Concomitant]
  8. LOPRESSOR [Concomitant]
  9. ZEBETA [Concomitant]
  10. TIKOSYN [Concomitant]
  11. VIT C [Concomitant]
  12. GARLIC [Concomitant]
  13. DIGITEC [Concomitant]
  14. LIPITOR [Concomitant]
  15. LISINOPRIL [Concomitant]

REACTIONS (7)
  - ANURIA [None]
  - CHOKING [None]
  - CONVULSION [None]
  - DYSPEPSIA [None]
  - DYSPNOEA [None]
  - MOVEMENT DISORDER [None]
  - REGURGITATION OF FOOD [None]
